FAERS Safety Report 5648805-3 (Version None)
Quarter: 2008Q1

REPORT INFORMATION
  Report Type: 
  Country: None (occurrence: None)
  Receive Date: 20080303
  Receipt Date: 20080303
  Transmission Date: 20080703
  Serious: No
  Sender: FDA-Public Use
  Company Number: None

PATIENT
  Sex: Female
  Weight: 53.978 kg

DRUGS (2)
  1. B12 1 MG/ML APOTHECURE [Suspect]
     Indication: FATIGUE
     Dosage: 0.9 ML ONCE IM
     Route: 030
     Dates: start: 20080114, end: 20080114
  2. FOLIC ACID 5 MG/ML ABRAXIS [Suspect]
     Dosage: 0.1 ML ONCE  IM
     Route: 030
     Dates: start: 20080114, end: 20080114

REACTIONS (18)
  - BALANCE DISORDER [None]
  - BLOOD PRESSURE DECREASED [None]
  - COLD SWEAT [None]
  - DEPRESSED LEVEL OF CONSCIOUSNESS [None]
  - DISORIENTATION [None]
  - DRUG HYPERSENSITIVITY [None]
  - FATIGUE [None]
  - FEELING COLD [None]
  - HALLUCINATION [None]
  - HYPOGLYCAEMIA [None]
  - INJECTION SITE PAIN [None]
  - NO REACTION ON PREVIOUS EXPOSURE TO DRUG [None]
  - PARAESTHESIA [None]
  - PHARMACEUTICAL PRODUCT COMPLAINT [None]
  - SCREAMING [None]
  - SYNCOPE [None]
  - SYNCOPE VASOVAGAL [None]
  - TREMOR [None]
